FAERS Safety Report 17954473 (Version 1)
Quarter: 2020Q2

REPORT INFORMATION
  Report Type: Spontaneous
  Country: JP (occurrence: JP)
  Receive Date: 20200629
  Receipt Date: 20200629
  Transmission Date: 20200714
  Serious: Yes (Other)
  Sender: FDA-Public Use
  Company Number: JP-009507513-2006JPN002024J

PATIENT
  Age: 66 Year
  Sex: Male

DRUGS (3)
  1. KEYTRUDA [Suspect]
     Active Substance: PEMBROLIZUMAB
     Indication: HEAD AND NECK CANCER
     Dosage: 200 MILLIGRAM, Q3W
     Route: 041
     Dates: start: 202006
  2. CISPLATIN. [Suspect]
     Active Substance: CISPLATIN
     Dosage: UNK
     Route: 051
     Dates: start: 202006
  3. 5-FU [Suspect]
     Active Substance: FLUOROURACIL
     Dosage: UNK
     Route: 051
     Dates: start: 202006

REACTIONS (1)
  - Bone marrow failure [Recovered/Resolved]

NARRATIVE: CASE EVENT DATE: 202006
